FAERS Safety Report 15653217 (Version 1)
Quarter: 2018Q4

REPORT INFORMATION
  Report Type: Spontaneous
  Country: FR (occurrence: FR)
  Receive Date: 20181123
  Receipt Date: 20181123
  Transmission Date: 20190205
  Serious: Yes (Other)
  Sender: FDA-Public Use
  Company Number: FR-TEVA-2018-FR-977679

PATIENT
  Age: 87 Year
  Sex: Female
  Weight: 49 kg

DRUGS (7)
  1. TARDYFERON 80 MG, COMPRIM? ENROB? [Suspect]
     Active Substance: FERROUS SULFATE
     Indication: IRON DEFICIENCY ANAEMIA
     Route: 048
     Dates: start: 20171023, end: 20180803
  2. TOVIAZ 4 MG, COMPRIM? ? LIB?RATION PROLONG?E [Suspect]
     Active Substance: DISODIUM FUMARATE
     Indication: URINARY INCONTINENCE
     Dosage: 1 DOSAGE FORMS DAILY;
     Route: 048
     Dates: start: 20171023, end: 20180803
  3. LACTULOSE. [Suspect]
     Active Substance: LACTULOSE
     Indication: CONSTIPATION
     Route: 048
     Dates: start: 20171023, end: 20180803
  4. PARACETAMOL [Suspect]
     Active Substance: ACETAMINOPHEN
     Indication: PAIN
     Dosage: 1000 MILLIGRAM DAILY;
     Route: 048
     Dates: end: 20180803
  5. PERINDOPRIL [Suspect]
     Active Substance: PERINDOPRIL
     Indication: HYPERTENSION
     Route: 048
     Dates: start: 20180404, end: 20180803
  6. PERINDOPRIL [Concomitant]
     Active Substance: PERINDOPRIL
     Route: 048
     Dates: end: 20180404
  7. INDAPAMIDE. [Concomitant]
     Active Substance: INDAPAMIDE
     Route: 048
     Dates: end: 20180404

REACTIONS (2)
  - Cholestasis [Recovered/Resolved]
  - Hepatocellular injury [Recovered/Resolved]

NARRATIVE: CASE EVENT DATE: 2018
